FAERS Safety Report 6866329-2 (Version None)
Quarter: 2010Q3

REPORT INFORMATION
  Report Type: 
  Country: None (occurrence: None)
  Receive Date: 20100722
  Receipt Date: 20100716
  Transmission Date: 20110219
  Serious: Yes (Hospitalization)
  Sender: FDA-Public Use
  Company Number: US-BRISTOL-MYERS SQUIBB COMPANY-15192180

PATIENT
  Age: 72 Year
  Sex: Female
  Weight: 78 kg

DRUGS (20)
  1. CARBOPLATIN [Suspect]
     Indication: BREAST CANCER METASTATIC
     Dosage: DAY 8
     Route: 042
     Dates: start: 20100312, end: 20100709
  2. IXABEPILONE [Suspect]
     Indication: BREAST CANCER METASTATIC
     Dosage: DAY 8
     Route: 042
     Dates: start: 20100312, end: 20100709
  3. AMBIEN [Concomitant]
     Indication: INSOMNIA
     Dosage: TABS TAKE 1 PO QHS PRN;13-14JUL2010.
     Route: 048
     Dates: start: 20100301
  4. HYDROCHLOROTHIAZIDE [Concomitant]
     Indication: HYPERTENSION
     Dosage: TAB;25MG/D
     Route: 048
     Dates: start: 19890101
  5. ACETAMINOPHEN AND HYDROCODONE BITARTRATE [Concomitant]
     Indication: PAIN
     Dosage: 1 DF= 5MG-325MG;ALSO Q4H
     Route: 048
     Dates: start: 20100301
  6. LASIX [Concomitant]
     Indication: FLUID RETENTION
     Route: 048
     Dates: start: 20100329
  7. LOVASTATIN [Concomitant]
     Indication: HYPERCHOLESTEROLAEMIA
     Route: 048
     Dates: start: 20000101
  8. MAALOX [Concomitant]
     Indication: GASTROOESOPHAGEAL REFLUX DISEASE
     Dosage: 1 DF= 1000-60MG, 0.5 PO Q8H
     Route: 048
     Dates: start: 20100422
  9. MAALOX [Concomitant]
     Indication: DYSPEPSIA
     Dosage: 1 DF= 1000-60MG, 0.5 PO Q8H
     Route: 048
     Dates: start: 20100422
  10. METOPROLOL TARTRATE [Concomitant]
     Indication: HYPERTENSION
     Route: 048
     Dates: start: 19890101
  11. NEXIUM [Concomitant]
     Indication: GASTROOESOPHAGEAL REFLUX DISEASE
     Route: 048
     Dates: start: 20100513
  12. NORCO [Concomitant]
     Indication: PAIN IN EXTREMITY
     Dosage: 13-14JUL2010(2TAB,1TABQ4H,PRN).
     Route: 048
     Dates: start: 20100708
  13. NORCO [Concomitant]
     Indication: ARTHRITIS
     Dosage: 13-14JUL2010(2TAB,1TABQ4H,PRN).
     Route: 048
     Dates: start: 20100708
  14. NORCO [Concomitant]
     Indication: PAIN
     Dosage: 13-14JUL2010(2TAB,1TABQ4H,PRN).
     Route: 048
     Dates: start: 20100708
  15. SALINE [Concomitant]
     Indication: NASAL DRYNESS
     Dosage: 1 PUFF
     Route: 045
     Dates: start: 20100513
  16. HEPARIN SODIUM [Concomitant]
     Dosage: 1DF=5000 UNITS.
     Route: 058
     Dates: start: 20100713, end: 20100714
  17. HUMULIN R [Concomitant]
     Route: 058
     Dates: start: 20100713, end: 20100714
  18. DEXTROSE 50% [Concomitant]
     Route: 042
     Dates: start: 20100713, end: 20100714
  19. APRESOLINE [Concomitant]
     Dosage: 25MG TAB; Q6H
     Route: 048
     Dates: start: 20100713, end: 20100714
  20. ZOFRAN [Concomitant]
     Dosage: Q4H;4MG/2ML
     Route: 042
     Dates: start: 20100713, end: 20100714

REACTIONS (2)
  - DYSPNOEA [None]
  - FATIGUE [None]
